FAERS Safety Report 9982998 (Version 1)
Quarter: 2014Q1

REPORT INFORMATION
  Report Type: Report from Study
  Country: US (occurrence: US)
  Receive Date: 20140307
  Receipt Date: 20140307
  Transmission Date: 20141002
  Serious: No
  Sender: FDA-Public Use
  Company Number: US-ABBVIE-13P-163-1176907-00

PATIENT
  Sex: Female
  Weight: 66.28 kg

DRUGS (3)
  1. HUMIRA [Suspect]
     Indication: PSORIATIC ARTHROPATHY
     Route: 058
     Dates: start: 2006
  2. HUMIRA [Suspect]
  3. HUMIRA [Suspect]
     Route: 058
     Dates: start: 20131203

REACTIONS (2)
  - Stress [Unknown]
  - Psoriatic arthropathy [Recovered/Resolved]
